FAERS Safety Report 4318827-3 (Version None)
Quarter: 2004Q1

REPORT INFORMATION
  Report Type: 
  Country: None (occurrence: None)
  Receive Date: 20040318
  Receipt Date: 20040302
  Transmission Date: 20041129
  Serious: Yes (Life-Threatening, Hospitalization, Disabling)
  Sender: FDA-Public Use
  Company Number: WAES 0403USA00227

PATIENT
  Age: 17 Year
  Sex: Male

DRUGS (1)
  1. SINGULAIR [Suspect]
     Indication: ASTHMA
     Route: 048
     Dates: start: 20000101, end: 20040201

REACTIONS (4)
  - CONVULSION [None]
  - GRAND MAL CONVULSION [None]
  - NAUSEA [None]
  - VOMITING [None]
